FAERS Safety Report 5825111-5 (Version None)
Quarter: 2008Q3

REPORT INFORMATION
  Report Type: 
  Country: None (occurrence: None)
  Receive Date: 20080725
  Receipt Date: 20080725
  Transmission Date: 20090109
  Serious: Yes (Other)
  Sender: FDA-Public Use
  Company Number: None

PATIENT
  Age: 38 Year
  Sex: Female
  Weight: 103.8737 kg

DRUGS (1)
  1. LEVOTHYROXINE SODIUM [Suspect]
     Indication: AUTOIMMUNE THYROIDITIS
     Dosage: 88 MCG ONE DAILY ORAL
     Route: 048
     Dates: start: 20020101, end: 20040101

REACTIONS (4)
  - FATIGUE [None]
  - FEELING HOT [None]
  - NO THERAPEUTIC RESPONSE [None]
  - RASH [None]
